FAERS Safety Report 7493239-2 (Version None)
Quarter: 2011Q2

REPORT INFORMATION
  Report Type: 
  Country: None (occurrence: None)
  Receive Date: 20110520
  Receipt Date: 20110406
  Transmission Date: 20111010
  Serious: Yes (Hospitalization, Other)
  Sender: FDA-Public Use
  Company Number: JP-BAYER-201012455BYL

PATIENT
  Age: 71 Year
  Sex: Male
  Weight: 48 kg

DRUGS (4)
  1. NEXAVAR [Suspect]
     Indication: HEPATIC NEOPLASM MALIGNANT
     Dosage: 400 MG, BID
     Route: 048
     Dates: start: 20100508, end: 20100520
  2. NEXAVAR [Suspect]
     Dosage: 400 MG, QD
     Route: 048
     Dates: start: 20100610, end: 20110203
  3. URSO 250 [Concomitant]
     Indication: HEPATITIS C
     Dosage: 600 MG, QD
     Route: 048
  4. AMLODIPINE [Concomitant]
     Indication: HYPERTENSION
     Dosage: 5 MG, QD
     Route: 048

REACTIONS (6)
  - HAEMORRHOIDAL HAEMORRHAGE [None]
  - DIARRHOEA [None]
  - MELAENA [None]
  - HEPATIC INFARCTION [None]
  - PANCREATITIS ACUTE [None]
  - ENCEPHALOPATHY [None]
